FAERS Safety Report 6399422-1 (Version None)
Quarter: 2009Q4

REPORT INFORMATION
  Report Type: 
  Country: None (occurrence: None)
  Receive Date: 20091014
  Receipt Date: 20091002
  Transmission Date: 20100525
  Serious: Yes (Disabling)
  Sender: FDA-Public Use
  Company Number: GB-AMGEN-US367817

PATIENT
  Age: 55 Year
  Sex: Male
  Weight: 80 kg

DRUGS (8)
  1. ENBREL [Suspect]
     Indication: RHEUMATOID ARTHRITIS
     Dosage: 50MG , FREQUENCY UNSPECIFIED
     Route: 058
     Dates: start: 20080111, end: 20090607
  2. HUMIRA [Suspect]
     Indication: RHEUMATOID ARTHRITIS
     Dosage: UNKNOWN
     Route: 058
  3. FOLIC ACID [Concomitant]
     Dosage: UNKNOWN
  4. SULFASALAZINE [Concomitant]
     Dosage: UNKNOWN
  5. METHOTREXATE [Concomitant]
  6. NAPROXEN [Concomitant]
     Dosage: UNKNOWN
  7. OMEPRAZOLE [Concomitant]
     Dosage: UNKNOWN
  8. HYDROXYCHLOROQUINE [Concomitant]
     Dosage: UNKNOWN

REACTIONS (1)
  - VERTIGO [None]
